FAERS Safety Report 17494432 (Version 1)
Quarter: 2020Q1

REPORT INFORMATION
  Report Type: Spontaneous
  Country: US (occurrence: US)
  Receive Date: 20200304
  Receipt Date: 20200304
  Transmission Date: 20200409
  Serious: No
  Sender: FDA-Public Use
  Company Number: US-VIFOR (INTERNATIONAL) INC.-VIT-2020-03017

PATIENT
  Sex: Female

DRUGS (1)
  1. VELPHORO [Suspect]
     Active Substance: FERRIC OXYHYDROXIDE
     Indication: PHOSPHORUS METABOLISM DISORDER
     Dosage: 2 OF 500 MG, 6 TABLETS DAILY WITH MEALS.

REACTIONS (2)
  - Abdominal discomfort [Unknown]
  - Drug intolerance [Unknown]
